FAERS Safety Report 9189780 (Version 3)
Quarter: 2013Q2

REPORT INFORMATION
  Report Type: Report from Study
  Country: US (occurrence: US)
  Receive Date: 20130326
  Receipt Date: 20130424
  Transmission Date: 20140414
  Serious: No
  Sender: FDA-Public Use
  Company Number: US-VERTEX PHARMACEUTICALS INC.-2013-004026

PATIENT
  Age: 59 Year
  Sex: Male

DRUGS (5)
  1. VX-950 (TELAPREVIR) [Suspect]
     Indication: HEPATITIS C
     Dosage: 750 MG, TID
     Route: 048
     Dates: start: 20130218, end: 20130312
  2. VX-950 (TELAPREVIR) [Suspect]
     Dosage: UNK
     Route: 048
     Dates: end: 20130408
  3. RIBAVIRIN [Suspect]
     Indication: HEPATITIS C
     Dosage: UNK
     Dates: start: 20130218
  4. RIBAVIRIN [Suspect]
     Dosage: 400 MG, QD
  5. PEGASYS [Suspect]
     Indication: HEPATITIS C
     Dosage: UNK
     Dates: start: 20130218

REACTIONS (4)
  - Fatigue [Not Recovered/Not Resolved]
  - Rash [Recovered/Resolved]
  - Diarrhoea [Recovered/Resolved]
  - Haemoglobin decreased [Not Recovered/Not Resolved]
